FAERS Safety Report 9220456 (Version 4)
Quarter: 2013Q4

REPORT INFORMATION
  Report Type: Spontaneous
  Country: GB (occurrence: GB)
  Receive Date: 20130409
  Receipt Date: 20131223
  Transmission Date: 20140711
  Serious: Yes (Death, Hospitalization, Other)
  Sender: FDA-Public Use
  Company Number: GB-TEVA-396078ISR

PATIENT
  Age: 87 Year
  Sex: Male
  Weight: 68 kg

DRUGS (6)
  1. SIMVASTATIN [Suspect]
     Indication: HYPERCHOLESTEROLAEMIA
     Dosage: 40 MILLIGRAM DAILY;
     Route: 048
     Dates: start: 20130211, end: 20130218
  2. CLARITHROMYCIN [Interacting]
     Indication: OSTEOMYELITIS
     Route: 048
     Dates: start: 20121101, end: 20130211
  3. LANSOPRAZOLE [Suspect]
  4. FUSIDIC ACID [Interacting]
     Indication: OSTEOMYELITIS
     Dosage: 1500 MILLIGRAM DAILY;
     Route: 048
     Dates: start: 20121220, end: 20130211
  5. ASPIRIN [Concomitant]
  6. LANTUS [Concomitant]

REACTIONS (5)
  - Rhabdomyolysis [Fatal]
  - Sepsis [Fatal]
  - Renal failure acute [Fatal]
  - Drug interaction [Unknown]
  - Incorrect drug administration duration [Unknown]
